FAERS Safety Report 9209604 (Version 2)
Quarter: 2013Q4

REPORT INFORMATION
  Report Type: Spontaneous
  Country: US (occurrence: US)
  Receive Date: 20130404
  Receipt Date: 20131226
  Transmission Date: 20140711
  Serious: Yes (Other)
  Sender: FDA-Public Use
  Company Number: US-BAYER-2013-040191

PATIENT
  Age: 32 Year
  Sex: Female
  Weight: 58.96 kg

DRUGS (8)
  1. YAZ [Suspect]
  2. YASMIN [Suspect]
  3. OCELLA [Suspect]
  4. ZARAH [Suspect]
  5. ASPIRIN [Concomitant]
  6. ALEVE LIQUID GELS [Concomitant]
     Indication: TEMPOROMANDIBULAR JOINT SYNDROME
     Dosage: DAILY
     Route: 048
  7. OXYCODONE [Concomitant]
     Indication: PAIN
     Route: 048
  8. ZYRTEC-D [Concomitant]
     Indication: MULTIPLE ALLERGIES
     Dosage: DAILY
     Route: 048

REACTIONS (5)
  - Cholecystectomy [None]
  - Cholecystitis chronic [None]
  - Injury [None]
  - Pain [None]
  - Pain [None]
